FAERS Safety Report 6643400-1 (Version None)
Quarter: 2010Q1

REPORT INFORMATION
  Report Type: 
  Country: None (occurrence: None)
  Receive Date: 20100319
  Receipt Date: 20100312
  Transmission Date: 20100710
  Serious: Yes (Death)
  Sender: FDA-Public Use
  Company Number: US-GILEAD-2010-0027673

PATIENT
  Sex: Female
  Weight: 47.67 kg

DRUGS (14)
  1. LETAIRIS [Suspect]
     Indication: PULMONARY HYPERTENSION
     Route: 048
     Dates: start: 20080502, end: 20100223
  2. HYDRALAZINE HCL [Concomitant]
  3. STARLIX [Concomitant]
  4. SYNTHROID [Concomitant]
  5. NEPHROVITE [Concomitant]
  6. RENAGEL [Concomitant]
  7. PREVACID [Concomitant]
  8. LORAZEPAM [Concomitant]
  9. LOMOTIL [Concomitant]
  10. HYDROXYZINE [Concomitant]
  11. PROCHLORPERAZINE [Concomitant]
  12. VICODIN [Concomitant]
  13. MEGACE [Concomitant]
  14. FOLIC ACID [Concomitant]

REACTIONS (1)
  - CARDIAC FAILURE [None]
